FAERS Safety Report 5472181-2 (Version None)
Quarter: 2007Q3

REPORT INFORMATION
  Report Type: 
  Country: None (occurrence: None)
  Receive Date: 20070925
  Receipt Date: 20070910
  Transmission Date: 20080115
  Serious: Yes (Hospitalization)
  Sender: FDA-Public Use
  Company Number: 6321 / 6037991

PATIENT
  Sex: Male

DRUGS (18)
  1. MESNA [Suspect]
     Indication: BURKITT'S LYMPHOMA
     Dosage: 360 MG/M2 (360 MG/M2, 1 IN 1 D) TRANSPLACENTAL
     Route: 064
  2. IFOSFAMIDE [Suspect]
     Indication: BURKITT'S LYMPHOMA
     Dosage: 1500 MG/M2 (1500 MG/M2, 1 IN 1 D) TRANSPLACENTAL
     Route: 064
  3. DOXORUBICIN HCL [Suspect]
     Indication: DRUG EXPOSURE DURING PREGNANCY
     Dosage: 40 MG (40 MG, 1 IN 1 D) TRANSPLACENTAL
     Route: 064
  4. CYTARABINE [Suspect]
     Indication: DRUG EXPOSURE DURING PREGNANCY
     Dosage: SEE IMAGE
  5. ETOPOSIDE [Suspect]
     Indication: DRUG EXPOSURE DURING PREGNANCY
     Dosage: 60 MG/M2 (60 MG/M2, 1 IN 1 D) TRANSPLACENTAL
     Route: 064
  6. ALLOPURINOL [Suspect]
     Indication: DRUG EXPOSURE DURING PREGNANCY
     Dosage: 600 MG (300 MG, 2 IN 1 D) TRANSPLACENTAL
     Route: 064
  7. ONDANSETRON HCL [Suspect]
     Indication: DRUG EXPOSURE DURING PREGNANCY
     Dosage: 16 MG (8 MG, 2 IN 1 D) TRANSPLACENTAL
     Route: 064
  8. METHOTREXATE [Suspect]
     Indication: DRUG EXPOSURE DURING PREGNANCY
     Dosage: TRANSPLACENTAL
     Route: 064
  9. DEXAMETHASONE TAB [Suspect]
     Indication: DRUG EXPOSURE DURING PREGNANCY
     Dosage: 16 MG (8 MG, 2 IN 1 D) TRANSPLACENTAL
     Route: 064
  10. CYCLOPHOSPHAMIDE [Suspect]
     Indication: DRUG EXPOSURE DURING PREGNANCY
     Dosage: 800 MG/M2 (800 MG/M2, 1 IN 1 D) TRANSPLACENTAL
     Route: 064
  11. LEUCOVORIN CALCIUM [Suspect]
     Indication: DRUG EXPOSURE DURING PREGNANCY
     Dosage: SEE IMAGE
     Route: 064
  12. LEUCOVORIN CALCIUM [Suspect]
     Indication: DRUG EXPOSURE DURING PREGNANCY
     Dosage: SEE IMAGE
     Route: 064
  13. LEUCOVORIN CALCIUM [Suspect]
     Indication: DRUG EXPOSURE DURING PREGNANCY
     Dosage: SEE IMAGE
     Route: 064
  14. GRANULOCYTE COLONY-STIMULATING FACTOR (GRANULOCYTE COLONY STIMULATING [Suspect]
     Indication: DRUG EXPOSURE DURING PREGNANCY
     Dosage: 5 UG/KG (5 UG/KG, 1 IN 1 D) SUBCUTANEOUS
     Route: 058
  15. PROMETHAZINE [Suspect]
     Indication: DRUG EXPOSURE DURING PREGNANCY
     Dosage: 100 MG (25 MG, 4 IN 1 D) TRANSPLACENTAL
     Route: 064
  16. VINCRISTINE [Suspect]
     Indication: DRUG EXPOSURE DURING PREGNANCY
     Dosage: 1,5 MG/M2 (1,5 MG/M2, 1 IN 1 D) TRANSPLACENTAL
     Route: 064
  17. NEUPOGEN [Suspect]
     Indication: DRUG EXPOSURE DURING PREGNANCY
     Dosage: 5 UG/KG (5 UG/KG, 1 IN 1 D) TRANSPLACENTAL
     Route: 064
  18. DARBEPOETIN ALFA (DARBEPOETIN ALFA) [Suspect]
     Indication: DRUG EXPOSURE DURING PREGNANCY
     Dosage: (100 MCG, 1 IN 1 WK) TRANSPLACENTAL
     Route: 064

REACTIONS (10)
  - CAESAREAN SECTION [None]
  - CLOSTRIDIUM DIFFICILE COLITIS [None]
  - CONGENITAL PNEUMONIA [None]
  - CYANOSIS NEONATAL [None]
  - DRUG EXPOSURE DURING PREGNANCY [None]
  - FEBRILE NEUTROPENIA [None]
  - NEONATAL RESPIRATORY DISTRESS SYNDROME [None]
  - PLATELET COUNT INCREASED [None]
  - PREMATURE BABY [None]
  - SEPSIS NEONATAL [None]
